FAERS Safety Report 23718285 (Version 1)
Quarter: 2024Q2

REPORT INFORMATION
  Report Type: Spontaneous
  Country: US (occurrence: None)
  Receive Date: 20240406
  Receipt Date: 20240406
  Transmission Date: 20240715
  Serious: Yes (Other)
  Sender: FDA-Public Use
  Company Number: None

PATIENT
  Age: 76 Year
  Sex: Female
  Weight: 67.5 kg

DRUGS (17)
  1. MOUNJARO [Suspect]
     Active Substance: TIRZEPATIDE
     Indication: Glycosylated haemoglobin increased
     Dosage: OTHER QUANTITY : 1 INJECTION(S)?OTHER FREQUENCY : EACH WEEK?
     Route: 030
     Dates: start: 20240404
  2. METHOTREXATE [Concomitant]
     Active Substance: METHOTREXATE
  3. FOLIC ACID [Concomitant]
     Active Substance: FOLIC ACID
  4. CARVEDILOL [Concomitant]
     Active Substance: CARVEDILOL
  5. CHLORTHALIDONE [Concomitant]
     Active Substance: CHLORTHALIDONE
  6. LISINOPRIL [Concomitant]
     Active Substance: LISINOPRIL
  7. HUMULIN R [Concomitant]
     Active Substance: INSULIN HUMAN
  8. VASCEPA [Concomitant]
     Active Substance: ICOSAPENT ETHYL
  9. CLOPIDOGREL [Concomitant]
     Active Substance: CLOPIDOGREL BISULFATE
  10. Praluent Mounjaro [Concomitant]
  11. FAMOTIDINE [Concomitant]
     Active Substance: FAMOTIDINE
  12. MITIGARE [Concomitant]
     Active Substance: COLCHICINE
  13. ALLOPURINOL [Concomitant]
     Active Substance: ALLOPURINOL
  14. Multivitamin with minerals oral solid [Concomitant]
  15. TYLENOL [Concomitant]
     Active Substance: ACETAMINOPHEN
  16. IBUPROFEN [Concomitant]
     Active Substance: IBUPROFEN
  17. MOUNJARO [Suspect]
     Active Substance: TIRZEPATIDE
     Indication: Weight control

REACTIONS (5)
  - Muscular weakness [None]
  - Eyelid ptosis [None]
  - Presyncope [None]
  - Muscular weakness [None]
  - Bulbar palsy [None]

NARRATIVE: CASE EVENT DATE: 20240406
